FAERS Safety Report 4470833-4 (Version None)
Quarter: 2004Q4

REPORT INFORMATION
  Report Type: 
  Country: None (occurrence: None)
  Receive Date: 20041005
  Receipt Date: 20040921
  Transmission Date: 20050328
  Serious: Yes (Hospitalization)
  Sender: FDA-Public Use
  Company Number: A03200403008

PATIENT
  Age: 36 Year
  Sex: Female

DRUGS (6)
  1. AMBIEN [Suspect]
     Dosage: 20 MG HS - ORAL
     Route: 048
     Dates: start: 20031021, end: 20031229
  2. AMBIEN [Suspect]
     Dosage: 450 MG QD- ORAL
     Route: 048
     Dates: start: 20031113
  3. MIRTAZAPINE [Concomitant]
  4. ARIPIPRAZOLE [Concomitant]
  5. TIABABINE HYDROCHLORIDE [Concomitant]
  6. LORAZEPAM [Concomitant]

REACTIONS (3)
  - CAESAREAN SECTION [None]
  - DRUG EXPOSURE DURING PREGNANCY [None]
  - PREMATURE BABY [None]
